FAERS Safety Report 19244238 (Version 1)
Quarter: 2021Q2

REPORT INFORMATION
  Report Type: Spontaneous
  Country: US (occurrence: US)
  Receive Date: 20210511
  Receipt Date: 20210511
  Transmission Date: 20210717
  Serious: No
  Sender: FDA-Public Use
  Company Number: US-ASTRAZENECA-2021A354373

PATIENT
  Sex: Female

DRUGS (2)
  1. MODERNA COVID [Concomitant]
  2. BYDUREON [Suspect]
     Active Substance: EXENATIDE
     Route: 058

REACTIONS (6)
  - Sleep disorder due to general medical condition, insomnia type [Unknown]
  - Malaise [Unknown]
  - Injection site pain [Not Recovered/Not Resolved]
  - Injection site warmth [Unknown]
  - Abdominal hernia [Unknown]
  - Pain [Recovered/Resolved]
